FAERS Safety Report 15847017 (Version 3)
Quarter: 2019Q1

REPORT INFORMATION
  Report Type: Spontaneous
  Country: UY (occurrence: UY)
  Receive Date: 20190121
  Receipt Date: 20190312
  Transmission Date: 20190417
  Serious: Yes (Other)
  Sender: FDA-Public Use
  Company Number: UY-ROCHE-2247336

PATIENT
  Age: 55 Year
  Sex: Female

DRUGS (1)
  1. MABTHERA [Suspect]
     Active Substance: RITUXIMAB
     Indication: RHEUMATOID ARTHRITIS
     Route: 042
     Dates: start: 20190116

REACTIONS (6)
  - Polyneuropathy [Unknown]
  - Aphthous ulcer [Not Recovered/Not Resolved]
  - Anaphylactic reaction [Recovered/Resolved]
  - Asthenia [Unknown]
  - Chills [Unknown]
  - Allergic respiratory disease [Recovered/Resolved]
